FAERS Safety Report 9154841 (Version 1)
Quarter: 2013Q1

REPORT INFORMATION
  Report Type: Spontaneous
  Country: US (occurrence: None)
  Receive Date: 20130305
  Receipt Date: 20130305
  Transmission Date: 20140127
  Serious: Yes (Other)
  Sender: FDA-Public Use
  Company Number: None

PATIENT
  Age: 59 Year
  Sex: Male
  Weight: 124.74 kg

DRUGS (1)
  1. SULFAMETH/TRIMETHOPRIM [Suspect]
     Indication: INFECTION
     Route: 048
     Dates: start: 20120602, end: 20120605

REACTIONS (8)
  - Renal failure [None]
  - Nerve injury [None]
  - Dyspnoea [None]
  - Hypoaesthesia [None]
  - Blood glucose increased [None]
  - Weight increased [None]
  - Scrotal swelling [None]
  - Impaired work ability [None]
